FAERS Safety Report 8914722 (Version 2)
Quarter: 2012Q4

REPORT INFORMATION
  Report Type: 
  Country: US (occurrence: US)
  Receive Date: 20121119
  Receipt Date: 20121219
  Transmission Date: 20130627
  Serious: Yes (Disabling, Other)
  Sender: FDA-Public Use
  Company Number: US-ELI_LILLY_AND_COMPANY-US201211002456

PATIENT
  Sex: Female

DRUGS (2)
  1. CYMBALTA [Suspect]
     Indication: DEPRESSION
     Dosage: 60 mg, qd
  2. TRAZODONE [Concomitant]
     Indication: INSOMNIA

REACTIONS (6)
  - Fibromyalgia [Unknown]
  - Suicidal ideation [Recovered/Resolved]
  - Depressed mood [Recovered/Resolved]
  - Crying [Recovered/Resolved]
  - Intervertebral disc protrusion [Unknown]
  - Drug withdrawal syndrome [Recovered/Resolved]
